FAERS Safety Report 16821480 (Version 1)
Quarter: 2019Q3

REPORT INFORMATION
  Report Type: Spontaneous
  Country: BE (occurrence: BE)
  Receive Date: 20190918
  Receipt Date: 20190918
  Transmission Date: 20191005
  Serious: Yes (Other)
  Sender: FDA-Public Use
  Company Number: BE-PFIZER INC-2019394771

PATIENT
  Age: 59 Year
  Sex: Female

DRUGS (11)
  1. SEROXAT CR [Suspect]
     Active Substance: PAROXETINE HYDROCHLORIDE
     Dosage: 5 MG, UNK
  2. UNI-TRANXENE [Concomitant]
     Dosage: UNK
  3. LAMBIPOL [Suspect]
     Active Substance: LAMOTRIGINE
     Dosage: UNK
  4. FEMOSTON LOW [Concomitant]
     Dosage: UNK
  5. L-THYROXINE [LEVOTHYROXINE SODIUM] [Concomitant]
     Active Substance: LEVOTHYROXINE SODIUM
     Dosage: UNK
  6. SEROXAT CR [Suspect]
     Active Substance: PAROXETINE HYDROCHLORIDE
     Dosage: 8 MG, UNK
     Dates: start: 201707
  7. EFFEXOR XR [Suspect]
     Active Substance: VENLAFAXINE HYDROCHLORIDE
     Dosage: UNK
  8. CYMBALTA [Suspect]
     Active Substance: DULOXETINE HYDROCHLORIDE
     Dosage: 90 MG, UNK
  9. PANTOMED [DEXPANTHENOL] [Concomitant]
     Dosage: UNK
  10. TRAZODONE [Concomitant]
     Active Substance: TRAZODONE HYDROCHLORIDE
     Dosage: UNK
  11. CYMBALTA [Suspect]
     Active Substance: DULOXETINE HYDROCHLORIDE
     Dosage: 70 MG, UNK
     Dates: start: 201810

REACTIONS (11)
  - Serotonin syndrome [Unknown]
  - Therapy non-responder [Unknown]
  - Myalgia [Not Recovered/Not Resolved]
  - Abnormal behaviour [Unknown]
  - Emotional disorder [Unknown]
  - Fatigue [Unknown]
  - Suicidal ideation [Unknown]
  - Withdrawal syndrome [Unknown]
  - Mood swings [Unknown]
  - Restlessness [Unknown]
  - Arthralgia [Not Recovered/Not Resolved]

NARRATIVE: CASE EVENT DATE: 201901
